FAERS Safety Report 25578945 (Version 1)
Quarter: 2025Q3

REPORT INFORMATION
  Report Type: Spontaneous
  Country: US (occurrence: US)
  Receive Date: 20250718
  Receipt Date: 20250718
  Transmission Date: 20251021
  Serious: Yes (Death, Other)
  Sender: AMGEN
  Company Number: US-AMGEN-USASP2025138989

PATIENT

DRUGS (2)
  1. BEVACIZUMAB [Suspect]
     Active Substance: BEVACIZUMAB
     Indication: Product used for unknown indication
     Route: 065
  2. DOXORUBICIN [Suspect]
     Active Substance: DOXORUBICIN
     Indication: Product used for unknown indication
     Route: 065

REACTIONS (25)
  - Death [Fatal]
  - Cardiac death [Fatal]
  - Cardiomyopathy [Unknown]
  - Atrial fibrillation [Unknown]
  - Diabetes mellitus [Unknown]
  - Ventricular arrhythmia [Unknown]
  - Torsade de pointes [Unknown]
  - Pericarditis [Unknown]
  - Cerebral ischaemia [Unknown]
  - Shock [Unknown]
  - Myocarditis [Unknown]
  - Embolism arterial [Unknown]
  - Pulmonary hypertension [Unknown]
  - Embolism venous [Unknown]
  - Acute myocardial infarction [Unknown]
  - Cardiac failure [Unknown]
  - Hypertension [Unknown]
  - Endocardial disease [Unknown]
  - Dyslipidaemia [Unknown]
  - Arrhythmia supraventricular [Unknown]
  - Peripheral arterial occlusive disease [Unknown]
  - Cardiac disorder [Unknown]
  - Pericardial disease [Unknown]
  - Atrial flutter [Unknown]
  - Adverse drug reaction [Unknown]
